FAERS Safety Report 8804470 (Version 1)
Quarter: 2012Q4

REPORT INFORMATION
  Report Type: 
  Country: US (occurrence: US)
  Receive Date: 20120924
  Receipt Date: 20120924
  Transmission Date: 20130627
  Serious: No
  Sender: FDA-Public Use
  Company Number: US-ASTRAZENECA-2012SE70503

PATIENT
  Age: 44 Year
  Sex: Female

DRUGS (3)
  1. SYMBICORT [Suspect]
     Dosage: 160/ 4.5 MCG, 2 PUFFS TWO TIMES A DAY
     Route: 055
     Dates: start: 201110
  2. SYMBICORT [Suspect]
     Dosage: 160/ 4.5 MCG, DAILY AS NEEDED
     Route: 055
  3. SPIRIVA [Concomitant]

REACTIONS (2)
  - Visual impairment [Unknown]
  - Intentional drug misuse [Unknown]
